FAERS Safety Report 4355963-X (Version None)
Quarter: 2004Q2

REPORT INFORMATION
  Report Type: 
  Country: None (occurrence: None)
  Receive Date: 20040505
  Receipt Date: 20040423
  Transmission Date: 20050107
  Serious: Yes (Other)
  Sender: FDA-Public Use
  Company Number: HQWYE575823APR04

PATIENT
  Age: 36 Year
  Sex: Male

DRUGS (2)
  1. EFFEXOR [Suspect]
     Indication: DEPRESSION
     Dosage: ORAL
     Route: 048
     Dates: start: 20040301
  2. MARIJUANA (CANNABIS, ) [Suspect]
     Indication: DEPRESSION
     Dosage: INHALATION
     Route: 055
     Dates: start: 20040420, end: 20040420

REACTIONS (5)
  - AMNESIA [None]
  - DELUSION [None]
  - MENTAL DISORDER [None]
  - MURDER [None]
  - SUICIDAL IDEATION [None]
